FAERS Safety Report 11573301 (Version 3)
Quarter: 2016Q2

REPORT INFORMATION
  Report Type: Spontaneous
  Country: US (occurrence: US)
  Receive Date: 20150929
  Receipt Date: 20160511
  Transmission Date: 20160815
  Serious: Yes (Other)
  Sender: FDA-Public Use
  Company Number: US-MDT-ADR-2015-01865

PATIENT
  Age: 64 Year
  Sex: Male

DRUGS (6)
  1. COMPOUNDED BACLOFEN [Suspect]
     Active Substance: BACLOFEN
     Dosage: 46.7 MCG
     Route: 037
     Dates: end: 201509
  2. MORPHINE [Suspect]
     Active Substance: MORPHINE
     Dosage: 1.7518 MG/DAY
     Route: 037
     Dates: end: 201509
  3. VENLAFAXINE [Suspect]
     Active Substance: VENLAFAXINE HYDROCHLORIDE
     Route: 048
  4. HYDROXYZINE PAMOATE. [Suspect]
     Active Substance: HYDROXYZINE PAMOATE
  5. MORPHINE [Suspect]
     Active Substance: MORPHINE
     Dosage: 1.7518 MG/DAY
     Route: 037
     Dates: start: 20150922
  6. COMPOUNDED BACLOFEN [Suspect]
     Active Substance: BACLOFEN
     Dosage: 46.7 MCG/DAY
     Route: 037
     Dates: start: 20150922

REACTIONS (1)
  - Drug withdrawal syndrome [Recovered/Resolved]

NARRATIVE: CASE EVENT DATE: 20150919
